FAERS Safety Report 5301466-5 (Version None)
Quarter: 2007Q2

REPORT INFORMATION
  Report Type: 
  Country: None (occurrence: None)
  Receive Date: 20070412
  Receipt Date: 20070323
  Transmission Date: 20071010
  Serious: Yes (Death, Hospitalization, Other)
  Sender: FDA-Public Use
  Company Number: 163-21880-07031462

PATIENT
  Age: 78 Year
  Sex: Female

DRUGS (12)
  1. REVLIMID [Suspect]
     Indication: MYELODYSPLASTIC SYNDROME
     Dosage: 10 MG, 1 IN 1 D, ORAL
     Route: 048
     Dates: start: 20070112, end: 20070125
  2. REVLIMID [Suspect]
     Indication: MYELODYSPLASTIC SYNDROME
     Dosage: 10 MG, 1 IN 1 D, ORAL
     Route: 048
     Dates: start: 20070128, end: 20070129
  3. DIFLUCAN [Concomitant]
  4. CLARITIN [Concomitant]
  5. ULTRAM [Concomitant]
  6. LOPRESSOR [Concomitant]
  7. ZYLOPRIM [Concomitant]
  8. TRAMADOL HCL [Concomitant]
  9. TYLENOL [Concomitant]
  10. AMBIEN [Concomitant]
  11. BUMEX [Concomitant]
  12. ENALAPRIL MALEATE [Concomitant]

REACTIONS (4)
  - APLASIA [None]
  - INFECTION [None]
  - PANCYTOPENIA [None]
  - SEPSIS [None]
